FAERS Safety Report 14318725 (Version 4)
Quarter: 2018Q4

REPORT INFORMATION
  Report Type: Spontaneous
  Country: US (occurrence: US)
  Receive Date: 20171222
  Receipt Date: 20181204
  Transmission Date: 20190204
  Serious: Yes (Life-Threatening, Hospitalization)
  Sender: FDA-Public Use
  Company Number: US-GLENMARK PHARMACEUTICALS-2017GMK030081

PATIENT

DRUGS (2)
  1. LITHIUM CARBONATE. [Suspect]
     Active Substance: LITHIUM CARBONATE
     Indication: BIPOLAR DISORDER
     Dosage: 300 MG, TID
     Route: 048
     Dates: end: 20170930
  2. INSULIN [Concomitant]
     Active Substance: INSULIN NOS
     Indication: DIABETES MELLITUS
     Dosage: 65 UNITS, UNK
     Route: 065

REACTIONS (9)
  - Toxicity to various agents [Recovering/Resolving]
  - Renal disorder [Recovering/Resolving]
  - Abnormal behaviour [Unknown]
  - Coma [Recovering/Resolving]
  - Pollakiuria [Unknown]
  - Product monitoring error [Unknown]
  - Mental disorder [Not Recovered/Not Resolved]
  - Sepsis [Not Recovered/Not Resolved]
  - Weight decreased [Unknown]

NARRATIVE: CASE EVENT DATE: 201708
